FAERS Safety Report 8230347-2 (Version None)
Quarter: 2012Q1

REPORT INFORMATION
  Report Type: 
  Country: None (occurrence: None)
  Receive Date: 20120323
  Receipt Date: 20120313
  Transmission Date: 20120608
  Serious: Yes (Hospitalization)
  Sender: FDA-Public Use
  Company Number: BR-US-EMD SERONO, INC.-7119734

PATIENT
  Age: 50 Year
  Sex: Male

DRUGS (1)
  1. REBIF [Suspect]
     Indication: PRODUCT USED FOR UNKNOWN INDICATION
     Dates: start: 20011201, end: 20120117

REACTIONS (9)
  - INFLUENZA LIKE ILLNESS [None]
  - WRONG TECHNIQUE IN DRUG USAGE PROCESS [None]
  - RESPIRATORY FAILURE [None]
  - INJECTION SITE REACTION [None]
  - RESPIRATORY TRACT INFECTION [None]
  - TREMOR [None]
  - SPEECH DISORDER [None]
  - SOMNOLENCE [None]
  - FATIGUE [None]
